FAERS Safety Report 13253020 (Version 1)
Quarter: 2017Q1

REPORT INFORMATION
  Report Type: Spontaneous
  Country: US (occurrence: US)
  Receive Date: 20170220
  Receipt Date: 20170220
  Transmission Date: 20170428
  Serious: Yes (Hospitalization)
  Sender: FDA-Public Use
  Company Number: US-B.I. PHARMACEUTICALS,INC./RIDGEFIELD-2017-BI-008478

PATIENT
  Age: 56 Year
  Sex: Male

DRUGS (1)
  1. PRADAXA [Suspect]
     Active Substance: DABIGATRAN ETEXILATE MESYLATE
     Indication: ATRIAL FIBRILLATION
     Dosage: BID;  FORM STRENGTH: 150 MG; FORMULATION: CAPSULE ADMINISTRATION CORRECT? YES ACTION(S) TAKEN WITH P
     Route: 048
     Dates: start: 2011, end: 201603

REACTIONS (2)
  - Muscular weakness [Recovered/Resolved]
  - Cerebrovascular accident [Recovered/Resolved with Sequelae]

NARRATIVE: CASE EVENT DATE: 20170202
